FAERS Safety Report 11415152 (Version 1)
Quarter: 2015Q3

REPORT INFORMATION
  Report Type: Not Available
  Country: US (occurrence: US)
  Receive Date: 20150825
  Receipt Date: 20150825
  Transmission Date: 20151125
  Serious: Yes (Life-Threatening, Hospitalization, Disabling, Other)
  Sender: FDA-Public Use
  Company Number: US-LUPIN PHARMACEUTICALS INC.-E2B_00004070

PATIENT
  Age: 57 Year
  Sex: Male
  Weight: 77.18 kg

DRUGS (1)
  1. LISINOPRIL TABLETS USP 20MG [Suspect]
     Active Substance: LISINOPRIL
     Indication: HYPERTENSION
     Dates: start: 201404, end: 2014

REACTIONS (4)
  - Weight decreased [Unknown]
  - Angioedema [Recovered/Resolved]
  - Amyotrophic lateral sclerosis [Not Recovered/Not Resolved]
  - Aphasia [Not Recovered/Not Resolved]

NARRATIVE: CASE EVENT DATE: 201405
